FAERS Safety Report 11132294 (Version 1)
Quarter: 2015Q2

REPORT INFORMATION
  Report Type: Spontaneous
  Country: US (occurrence: US)
  Receive Date: 20150522
  Receipt Date: 20150522
  Transmission Date: 20150821
  Serious: Yes (Death, Other)
  Sender: FDA-Public Use
  Company Number: PHHY2015US058269

PATIENT
  Age: 60 Year
  Sex: Male

DRUGS (1)
  1. PREDNISONE. [Suspect]
     Active Substance: PREDNISONE
     Indication: MUSCULOSKELETAL PAIN
     Route: 065

REACTIONS (6)
  - Varicella zoster virus infection [Fatal]
  - Arrhythmia [Fatal]
  - Skin necrosis [Fatal]
  - Drug abuse [Fatal]
  - Impaired healing [Fatal]
  - Skin ulcer [Unknown]
